FAERS Safety Report 21946708 (Version 1)
Quarter: 2023Q1

REPORT INFORMATION
  Report Type: Spontaneous
  Country: ZA (occurrence: ZA)
  Receive Date: 20230202
  Receipt Date: 20230202
  Transmission Date: 20230418
  Serious: Yes (Death)
  Sender: FDA-Public Use
  Company Number: ZA-002147023-NVSC2023ZA022434

PATIENT
  Age: 77 Year
  Sex: Male

DRUGS (1)
  1. HYDROCHLOROTHIAZIDE\VALSARTAN [Suspect]
     Active Substance: HYDROCHLOROTHIAZIDE\VALSARTAN
     Indication: Hypertension
     Dosage: 160 MG, QD (OTHER DOSAGE: 160/12.5 MG)
     Route: 065

REACTIONS (6)
  - Aneurysm [Fatal]
  - Myocardial infarction [Fatal]
  - Dizziness [Fatal]
  - Tremor [Fatal]
  - Loss of consciousness [Fatal]
  - Syncope [Fatal]
